FAERS Safety Report 8058182-9 (Version None)
Quarter: 2012Q1

REPORT INFORMATION
  Report Type: 
  Country: None (occurrence: None)
  Receive Date: 20120112
  Receipt Date: 20120106
  Transmission Date: 20120608
  Serious: No
  Sender: FDA-Public Use
  Company Number: 2011SP056427

PATIENT
  Age: 59 Year
  Sex: Male

DRUGS (4)
  1. SAPHRIS [Suspect]
     Indication: BIPOLAR DISORDER
     Dosage: SAPHRIS 10 MG;QD;PO ; 5MG;QD; PO
     Route: 048
     Dates: end: 20111010
  2. SAPHRIS [Suspect]
     Indication: BIPOLAR DISORDER
     Dosage: SAPHRIS 10 MG;QD;PO ; 5MG;QD; PO
     Route: 048
     Dates: start: 20110928
  3. INVEGA SUSTENNA [Concomitant]
  4. LAMICTAL [Concomitant]

REACTIONS (3)
  - RASH [None]
  - ERYTHEMA [None]
  - BURNING SENSATION [None]
